FAERS Safety Report 23033717 (Version 1)
Quarter: 2023Q4

REPORT INFORMATION
  Report Type: Spontaneous
  Country: GB (occurrence: GB)
  Receive Date: 20231005
  Receipt Date: 20231005
  Transmission Date: 20240109
  Serious: Yes (Disabling)
  Sender: FDA-Public Use
  Company Number: None

PATIENT
  Age: 76 Year
  Sex: Male
  Weight: 114 kg

DRUGS (7)
  1. TRAMADOL [Suspect]
     Active Substance: TRAMADOL\TRAMADOL HYDROCHLORIDE
     Indication: Product used for unknown indication
     Dosage: UNIT DOSE: 50MG
     Route: 065
  2. AMITRIPTYLINE HYDROCHLORIDE [Concomitant]
     Active Substance: AMITRIPTYLINE HYDROCHLORIDE
     Indication: Product used for unknown indication
     Dosage: 1 DOSAGE FORMS DAILY; AT NIGHT, UNIT DOSE: 1DF
     Dates: start: 20230316
  3. FLUCLOXACILLIN [Concomitant]
     Active Substance: FLUCLOXACILLIN
     Indication: Product used for unknown indication
     Dosage: 4 DOSAGE FORMS DAILY; UNIT DOSE: 1DF, FREQUENCY: FOUR TIMES DAILY, DURATION: 149 DAYS
     Dates: start: 20230415, end: 20230911
  4. FUROSEMIDE [Concomitant]
     Active Substance: FUROSEMIDE
     Indication: Product used for unknown indication
     Dosage: 1 DOSAGE FORMS DAILY; MORNING, UNIT DOSE: 1DF
     Dates: start: 20230316
  5. SILDENAFIL [Concomitant]
     Active Substance: SILDENAFIL
     Indication: Product used for unknown indication
     Dosage: TO BE USED 60 MINS BEFORE INTERCOURSE, UNIT DOSE: 1DF
     Dates: start: 20230316
  6. SOLPADOL [Concomitant]
     Indication: Product used for unknown indication
     Dosage: 4 DOSAGE FORMS DAILY; WHEN REQUIRED, UNIT DOSE: 2 DF, FREQUENCY: TWICE DAILY
     Dates: start: 20230316
  7. ZEROBASE [Concomitant]
     Indication: Product used for unknown indication
     Dosage: 4 DOSAGE FORMS DAILY; APPLY, UNIT DOSE: 1DF, FREQUENCY: FOUR TIMES DAILY
     Dates: start: 20230316

REACTIONS (1)
  - Memory impairment [Unknown]
